FAERS Safety Report 24259104 (Version 1)
Quarter: 2024Q3

REPORT INFORMATION
  Report Type: Spontaneous
  Country: US (occurrence: None)
  Receive Date: 20240827
  Receipt Date: 20240827
  Transmission Date: 20241017
  Serious: Yes (Hospitalization)
  Sender: Public
  Company Number: None

PATIENT
  Age: 72 Year
  Sex: Female

DRUGS (5)
  1. WINREVAIR [Suspect]
     Active Substance: SOTATERCEPT-CSRK
     Dates: start: 202407
  2. TERIPARATIDE PEN (TEVA) [Concomitant]
  3. SILDENAFIL CITRATE [Concomitant]
  4. OPSUMIT [Concomitant]
  5. TYVASO DPI MAINT KIT PWD [Concomitant]

REACTIONS (2)
  - Urinary tract infection [None]
  - Sepsis [None]

NARRATIVE: CASE EVENT DATE: 20240823
